FAERS Safety Report 23636669 (Version 1)
Quarter: 2024Q1

REPORT INFORMATION
  Report Type: Spontaneous
  Country: US (occurrence: None)
  Receive Date: 20240315
  Receipt Date: 20240315
  Transmission Date: 20240410
  Serious: Yes (Other)
  Sender: FDA-Public Use
  Company Number: None

PATIENT

DRUGS (2)
  1. DEVICE\NICOTINE [Suspect]
     Active Substance: DEVICE\NICOTINE
  2. .DELTA.9-TETRAHYDROCANNABINOL\HERBALS [Suspect]
     Active Substance: .DELTA.9-TETRAHYDROCANNABINOL\HERBALS

REACTIONS (3)
  - Adulterated product [None]
  - Suspected product contamination [None]
  - Drug screen positive [None]

NARRATIVE: CASE EVENT DATE: 20240126
